FAERS Safety Report 24176305 (Version 1)
Quarter: 2024Q3

REPORT INFORMATION
  Report Type: Spontaneous
  Country: US (occurrence: None)
  Receive Date: 20240806
  Receipt Date: 20240806
  Transmission Date: 20241017
  Serious: No
  Sender: ASTRAZENECA
  Company Number: 2024A168150

PATIENT
  Sex: Male

DRUGS (1)
  1. BUDESONIDE\FORMOTEROL [Suspect]
     Active Substance: BUDESONIDE\FORMOTEROL
     Dosage: UNKNOWN UNKNOWN
     Route: 055

REACTIONS (11)
  - Blood pressure decreased [Unknown]
  - Eye pain [Unknown]
  - Sinus pain [Unknown]
  - Back pain [Unknown]
  - Hypoaesthesia [Unknown]
  - Limb discomfort [Unknown]
  - Sinus disorder [Unknown]
  - Rhinorrhoea [Unknown]
  - Nasal congestion [Unknown]
  - Upper respiratory tract congestion [Unknown]
  - Malaise [Unknown]
